FAERS Safety Report 7939926-0 (Version None)
Quarter: 2011Q4

REPORT INFORMATION
  Report Type: 
  Country: None (occurrence: None)
  Receive Date: 20111125
  Receipt Date: 20111117
  Transmission Date: 20120403
  Serious: Yes (Other)
  Sender: FDA-Public Use
  Company Number: GB-AMGEN-GBRSP2011061577

PATIENT
  Age: 66 Year
  Sex: Male
  Weight: 93 kg

DRUGS (3)
  1. HUMIRA [Suspect]
     Indication: RHEUMATOID ARTHRITIS
     Dosage: 40 MG ONCE EVERY 2 WEEKS
     Dates: start: 20110103, end: 20111028
  2. DICLOFENAC SODIUM [Concomitant]
     Dosage: UNK
  3. ENBREL [Suspect]
     Indication: RHEUMATOID ARTHRITIS
     Dosage: 25 MG, 2X/WEEK
     Route: 058
     Dates: start: 20040803, end: 20110103

REACTIONS (3)
  - POLLAKIURIA [None]
  - PROSTATE CANCER STAGE 0 [None]
  - MICTURITION URGENCY [None]
